FAERS Safety Report 7500240-9 (Version None)
Quarter: 2011Q2

REPORT INFORMATION
  Report Type: 
  Country: None (occurrence: None)
  Receive Date: 20110524
  Receipt Date: 20100420
  Transmission Date: 20111010
  Serious: No
  Sender: FDA-Public Use
  Company Number: US-NOVEN-ALL1-2010-02331

PATIENT

DRUGS (3)
  1. CLONIDINE [Concomitant]
     Dosage: UNK MG, UNKNOWN
     Route: 048
     Dates: end: 20100328
  2. FLUORIDE VITAMINS [Concomitant]
     Dosage: UNK MG, 1X/DAY:QD
     Route: 048
  3. DAYTRANA [Suspect]
     Dosage: 20 MG, 1X/DAY:QD
     Route: 062
     Dates: start: 20091101, end: 20100328

REACTIONS (2)
  - ANGER [None]
  - OFF LABEL USE [None]
